FAERS Safety Report 5361757-9 (Version None)
Quarter: 2007Q2

REPORT INFORMATION
  Report Type: 
  Country: None (occurrence: None)
  Receive Date: 20070619
  Receipt Date: 20070611
  Transmission Date: 20071010
  Serious: Yes (Other)
  Sender: FDA-Public Use
  Company Number: FR-BRISTOL-MYERS SQUIBB COMPANY-13615943

PATIENT
  Age: 48 Year
  Sex: Male

DRUGS (4)
  1. REYATAZ [Suspect]
     Indication: HIV TEST POSITIVE
     Route: 048
     Dates: start: 20060101, end: 20070521
  2. COMBIVIR [Suspect]
     Indication: HIV TEST POSITIVE
     Dosage: STARTED 2000 TO 2002 AND THEN IN 2003.
     Dates: start: 20060101, end: 20070521
  3. DEROXAT [Concomitant]
     Dates: start: 20060101
  4. LEXOMIL [Concomitant]
     Dates: start: 20060101

REACTIONS (1)
  - ENCEPHALITIS [None]
